FAERS Safety Report 8509797 (Version 3)
Quarter: 2012Q4

REPORT INFORMATION
  Report Type: 
  Country: DE (occurrence: DE)
  Receive Date: 20120413
  Receipt Date: 20120925
  Transmission Date: 20130627
  Serious: Yes (Death, Life-Threatening, Hospitalization, Other)
  Sender: FDA-Public Use
  Company Number: DE-JNJFOC-20120403158

PATIENT
  Age: 86 Year
  Sex: Female
  Weight: 60 kg

DRUGS (6)
  1. RIVAROXABAN [Suspect]
     Indication: CEREBROVASCULAR ACCIDENT PROPHYLAXIS
     Route: 048
     Dates: start: 20120216
  2. RIVAROXABAN [Suspect]
     Indication: ATRIAL FIBRILLATION
     Route: 048
     Dates: start: 20120216
  3. METOPROLOL [Concomitant]
  4. ADUMBRAN [Concomitant]
  5. TORASEMID [Concomitant]
  6. METOCLOPRAMIDE [Concomitant]

REACTIONS (6)
  - Somnolence [Fatal]
  - Laceration [Unknown]
  - Fall [Unknown]
  - Subdural haematoma [Fatal]
  - Cerebral haemorrhage [Fatal]
  - Head injury [Unknown]
